FAERS Safety Report 5125819-3 (Version None)
Quarter: 2006Q4

REPORT INFORMATION
  Report Type: 
  Country: None (occurrence: None)
  Receive Date: 20061012
  Receipt Date: 20050706
  Transmission Date: 20070319
  Serious: Yes (Hospitalization)
  Sender: FDA-Public Use
  Company Number: PHRM2005FR02082

PATIENT
  Age: 7 Year
  Sex: Male
  Weight: 28.5 kg

DRUGS (3)
  1. DESFERAL [Suspect]
     Indication: BLOOD IRON INCREASED
     Dosage: 1500 MG MON, WED, FRI ; 2000 MG TUES, THURS
     Route: 058
     Dates: start: 20041201
  2. DESFERAL [Suspect]
     Route: 042
     Dates: start: 19980101, end: 20041208
  3. ACETAMINOPHEN [Concomitant]
     Dosage: 1800 MG, PRN
     Route: 042

REACTIONS (12)
  - AGRANULOCYTOSIS [None]
  - ALANINE AMINOTRANSFERASE INCREASED [None]
  - APLASIA PURE RED CELL [None]
  - BICYTOPENIA [None]
  - BONE MARROW FAILURE [None]
  - BONE MARROW TRANSPLANT [None]
  - C-REACTIVE PROTEIN INCREASED [None]
  - EOSINOPHILIA [None]
  - GAMMA-GLUTAMYLTRANSFERASE INCREASED [None]
  - MYELOFIBROSIS [None]
  - NEUTROPENIA [None]
  - PYREXIA [None]
